FAERS Safety Report 18604530 (Version 1)
Quarter: 2020Q4

REPORT INFORMATION
  Report Type: Spontaneous
  Country: US (occurrence: US)
  Receive Date: 20201211
  Receipt Date: 20201211
  Transmission Date: 20210114
  Serious: Yes (Other)
  Sender: FDA-Public Use
  Company Number: NVSC2020US327932

PATIENT
  Age: 26 Year
  Sex: Male

DRUGS (3)
  1. NOREPINEPHRINE. [Suspect]
     Active Substance: NOREPINEPHRINE
     Indication: CARDIAC ARREST
     Dosage: 0.2 MCG/KG/MIN
     Route: 065
  2. EPINEPHRINE HYDROGENTARTRATE [Suspect]
     Active Substance: EPINEPHRINE BITARTRATE
     Indication: CARDIAC ARREST
     Dosage: 1 MG 2 DOSES
     Route: 065
  3. EPINEPHRINE HYDROGENTARTRATE [Suspect]
     Active Substance: EPINEPHRINE BITARTRATE
     Dosage: 1 MCG/KG/MIN
     Route: 065

REACTIONS (1)
  - Pulse abnormal [Unknown]
